FAERS Safety Report 17096706 (Version 1)
Quarter: 2019Q4

REPORT INFORMATION
  Report Type: Spontaneous
  Country: GB (occurrence: GB)
  Receive Date: 20191202
  Receipt Date: 20191202
  Transmission Date: 20200122
  Serious: Yes (Other)
  Sender: FDA-Public Use
  Company Number: GB-TEVA-2019-GB-1144041

PATIENT
  Age: 49 Year
  Sex: Female
  Weight: 76.2 kg

DRUGS (4)
  1. RANITIDINE. [Concomitant]
     Active Substance: RANITIDINE
  2. FEXOFENADINE HYDROCHLORIDE. [Suspect]
     Active Substance: FEXOFENADINE HYDROCHLORIDE
     Indication: IDIOPATHIC URTICARIA
     Dosage: 720 MILLIGRAM DAILY; CURRENTLY 2 X 180MG DAILY (1 AM + 1 PM)
     Route: 048
  3. FEXOFENADINE HYDROCHLORIDE. [Suspect]
     Active Substance: FEXOFENADINE HYDROCHLORIDE
     Dosage: 1440 MILLIGRAM DAILY; MAX 4X 180MG DAILY (2 TABLETS AM + 2 TABLETS PM)
     Route: 048
     Dates: start: 2012
  4. SERTRALINE [Concomitant]
     Active Substance: SERTRALINE HYDROCHLORIDE

REACTIONS (3)
  - Mental impairment [Unknown]
  - Disturbance in attention [Unknown]
  - Feeling abnormal [Unknown]
